APPROVED DRUG PRODUCT: METRONIDAZOLE IN PLASTIC CONTAINER
Active Ingredient: METRONIDAZOLE
Strength: 500MG/100ML
Dosage Form/Route: INJECTABLE;INJECTION
Application: N018890 | Product #002 | TE Code: AP
Applicant: HOSPIRA INC
Approved: Nov 18, 1983 | RLD: Yes | RS: Yes | Type: RX